FAERS Safety Report 7898474-7 (Version None)
Quarter: 2011Q4

REPORT INFORMATION
  Report Type: 
  Country: None (occurrence: None)
  Receive Date: 20111107
  Receipt Date: 20111101
  Transmission Date: 20120403
  Serious: Yes (Death)
  Sender: FDA-Public Use
  Company Number: NL-BAYER-2011-105603

PATIENT
  Age: 72 Year
  Sex: Male
  Weight: 112.2 kg

DRUGS (1)
  1. AVELOX [Suspect]
     Dosage: 1 DF, QD
     Route: 048
     Dates: start: 20110528, end: 20110601

REACTIONS (2)
  - HYPOXIA [None]
  - HYPERSENSITIVITY [None]
